FAERS Safety Report 5330491-3 (Version None)
Quarter: 2007Q2

REPORT INFORMATION
  Report Type: 
  Country: None (occurrence: None)
  Receive Date: 20070521
  Receipt Date: 20070511
  Transmission Date: 20071010
  Serious: Yes (Other)
  Sender: FDA-Public Use
  Company Number: US-AMGEN-US224255

PATIENT
  Sex: Male
  Weight: 78.7 kg

DRUGS (10)
  1. ARANESP [Suspect]
     Indication: RENAL FAILURE CHRONIC
  2. ADVAIR DISKUS 100/50 [Concomitant]
  3. COZAAR [Concomitant]
  4. HUMALOG [Concomitant]
  5. LANTUS [Concomitant]
  6. METOPROLOL SUCCINATE [Concomitant]
  7. NORVASC [Concomitant]
  8. PREVACID [Concomitant]
  9. RENAGEL [Concomitant]
  10. SINGULAIR [Concomitant]

REACTIONS (1)
  - APLASIA PURE RED CELL [None]
